FAERS Safety Report 25550274 (Version 1)
Quarter: 2025Q3

REPORT INFORMATION
  Report Type: Spontaneous
  Country: EU (occurrence: EU)
  Receive Date: 20250714
  Receipt Date: 20250714
  Transmission Date: 20251020
  Serious: Yes (Other)
  Sender: MYLAN
  Company Number: EU-SANDOZ-SDZ2025AT043249

PATIENT
  Sex: Female

DRUGS (44)
  1. FENOFIBRATE [Suspect]
     Active Substance: FENOFIBRATE
     Indication: Product used for unknown indication
  2. FENOFIBRATE [Suspect]
     Active Substance: FENOFIBRATE
     Route: 048
  3. FENOFIBRATE [Suspect]
     Active Substance: FENOFIBRATE
     Route: 048
  4. FENOFIBRATE [Suspect]
     Active Substance: FENOFIBRATE
  5. CELECOXIB [Suspect]
     Active Substance: CELECOXIB
     Indication: Product used for unknown indication
  6. CELECOXIB [Suspect]
     Active Substance: CELECOXIB
     Route: 048
  7. CELECOXIB [Suspect]
     Active Substance: CELECOXIB
     Route: 048
  8. CELECOXIB [Suspect]
     Active Substance: CELECOXIB
  9. ETOPOSIDE [Suspect]
     Active Substance: ETOPOSIDE
     Indication: Medulloblastoma
  10. ETOPOSIDE [Suspect]
     Active Substance: ETOPOSIDE
     Route: 048
  11. ETOPOSIDE [Suspect]
     Active Substance: ETOPOSIDE
     Route: 048
  12. ETOPOSIDE [Suspect]
     Active Substance: ETOPOSIDE
  13. GEMCITABINE [Suspect]
     Active Substance: GEMCITABINE
     Indication: Medulloblastoma
  14. GEMCITABINE [Suspect]
     Active Substance: GEMCITABINE
  15. GEMCITABINE [Suspect]
     Active Substance: GEMCITABINE
  16. GEMCITABINE [Suspect]
     Active Substance: GEMCITABINE
  17. CYCLOPHOSPHAMIDE [Suspect]
     Active Substance: CYCLOPHOSPHAMIDE
     Indication: Medulloblastoma
  18. CYCLOPHOSPHAMIDE [Suspect]
     Active Substance: CYCLOPHOSPHAMIDE
     Route: 048
  19. CYCLOPHOSPHAMIDE [Suspect]
     Active Substance: CYCLOPHOSPHAMIDE
     Route: 048
  20. CYCLOPHOSPHAMIDE [Suspect]
     Active Substance: CYCLOPHOSPHAMIDE
  21. TEMODAL [Suspect]
     Active Substance: TEMOZOLOMIDE
     Indication: Product used for unknown indication
  22. TEMODAL [Suspect]
     Active Substance: TEMOZOLOMIDE
     Route: 065
  23. TEMODAL [Suspect]
     Active Substance: TEMOZOLOMIDE
     Route: 065
  24. TEMODAL [Suspect]
     Active Substance: TEMOZOLOMIDE
  25. BEVACIZUMAB [Suspect]
     Active Substance: BEVACIZUMAB
     Indication: Medulloblastoma
  26. BEVACIZUMAB [Suspect]
     Active Substance: BEVACIZUMAB
  27. BEVACIZUMAB [Suspect]
     Active Substance: BEVACIZUMAB
     Route: 042
  28. BEVACIZUMAB [Suspect]
     Active Substance: BEVACIZUMAB
     Route: 042
  29. BEVACIZUMAB [Suspect]
     Active Substance: BEVACIZUMAB
  30. BEVACIZUMAB [Suspect]
     Active Substance: BEVACIZUMAB
  31. BEVACIZUMAB [Suspect]
     Active Substance: BEVACIZUMAB
  32. BEVACIZUMAB [Suspect]
     Active Substance: BEVACIZUMAB
  33. BEVACIZUMAB [Suspect]
     Active Substance: BEVACIZUMAB
  34. BEVACIZUMAB [Suspect]
     Active Substance: BEVACIZUMAB
  35. BEVACIZUMAB [Suspect]
     Active Substance: BEVACIZUMAB
  36. BEVACIZUMAB [Suspect]
     Active Substance: BEVACIZUMAB
  37. THALIDOMIDE [Suspect]
     Active Substance: THALIDOMIDE
     Indication: Product used for unknown indication
  38. THALIDOMIDE [Suspect]
     Active Substance: THALIDOMIDE
     Route: 048
  39. THALIDOMIDE [Suspect]
     Active Substance: THALIDOMIDE
     Route: 048
  40. THALIDOMIDE [Suspect]
     Active Substance: THALIDOMIDE
  41. ABEMACICLIB [Suspect]
     Active Substance: ABEMACICLIB
     Indication: Medulloblastoma
  42. ABEMACICLIB [Suspect]
     Active Substance: ABEMACICLIB
  43. ABEMACICLIB [Suspect]
     Active Substance: ABEMACICLIB
  44. ABEMACICLIB [Suspect]
     Active Substance: ABEMACICLIB

REACTIONS (1)
  - Rhabdoid tumour [Unknown]
